FAERS Safety Report 21350068 (Version 1)
Quarter: 2022Q3

REPORT INFORMATION
  Report Type: Spontaneous
  Country: US (occurrence: None)
  Receive Date: 20220917
  Receipt Date: 20220917
  Transmission Date: 20221027
  Serious: Yes (Other)
  Sender: FDA-Public Use
  Company Number: None

PATIENT
  Age: 26 Year
  Sex: Female
  Weight: 54.9 kg

DRUGS (3)
  1. PHENERGAN [Suspect]
     Active Substance: PROMETHAZINE HYDROCHLORIDE
     Indication: Nausea
     Route: 042
     Dates: start: 20220825, end: 20220825
  2. PHENERGAN [Suspect]
     Active Substance: PROMETHAZINE HYDROCHLORIDE
     Indication: Vomiting
  3. PHENERGAN [Suspect]
     Active Substance: PROMETHAZINE HYDROCHLORIDE
     Indication: Migraine

REACTIONS (7)
  - Incorrect drug administration rate [None]
  - Pain in extremity [None]
  - Monoplegia [None]
  - Peripheral swelling [None]
  - Limb discomfort [None]
  - Contusion [None]
  - Iatrogenic injury [None]

NARRATIVE: CASE EVENT DATE: 20220825
